FAERS Safety Report 10376835 (Version 2)
Quarter: 2015Q1

REPORT INFORMATION
  Report Type: Report from Study
  Country: US (occurrence: US)
  Receive Date: 20140811
  Receipt Date: 20150303
  Transmission Date: 20150720
  Serious: Yes (Death, Other)
  Sender: FDA-Public Use
  Company Number: US-GILEAD-2014-0111599

PATIENT
  Age: 72 Year
  Sex: Female

DRUGS (9)
  1. IRON [Concomitant]
     Active Substance: IRON
  2. FUROSEMIDE. [Concomitant]
     Active Substance: FUROSEMIDE
  3. PLAVIX [Concomitant]
     Active Substance: CLOPIDOGREL BISULFATE
  4. AMBRISENTAN [Suspect]
     Active Substance: AMBRISENTAN
     Indication: ILL-DEFINED DISORDER
     Dosage: 5 MG, QD
     Route: 065
     Dates: start: 20120125
  5. METHOTREXATE [Concomitant]
     Active Substance: METHOTREXATE
  6. PREVACID [Concomitant]
     Active Substance: LANSOPRAZOLE
  7. STOOL SOFTENER [Concomitant]
     Active Substance: DOCUSATE CALCIUM
  8. LIPITOR [Concomitant]
     Active Substance: ATORVASTATIN CALCIUM
  9. SYNTHROID [Concomitant]
     Active Substance: LEVOTHYROXINE SODIUM

REACTIONS (2)
  - Renal failure [Fatal]
  - Hepatic cirrhosis [Fatal]
